FAERS Safety Report 6964935-8 (Version None)
Quarter: 2010Q3

REPORT INFORMATION
  Report Type: 
  Country: None (occurrence: None)
  Receive Date: 20100903
  Receipt Date: 20100824
  Transmission Date: 20110219
  Serious: Yes (Hospitalization)
  Sender: FDA-Public Use
  Company Number: JP-JNJFOC-20100809037

PATIENT
  Age: 74 Year
  Sex: Male

DRUGS (3)
  1. REMICADE [Suspect]
     Indication: CROHN'S DISEASE
     Dosage: 1ST DOSE
     Route: 042
  2. PENTASA [Suspect]
     Indication: CROHN'S DISEASE
  3. ELENTAL [Concomitant]
     Indication: CROHN'S DISEASE

REACTIONS (1)
  - ILEUS [None]
